FAERS Safety Report 9070818 (Version 1)
Quarter: 2013Q1

REPORT INFORMATION
  Report Type: Spontaneous
  Country: US (occurrence: US)
  Receive Date: 20130206
  Receipt Date: 20130206
  Transmission Date: 20140127
  Serious: No
  Sender: FDA-Public Use
  Company Number: US-ALLERGAN-1205623US

PATIENT
  Age: 73 Year
  Sex: Female

DRUGS (5)
  1. RESTASIS? [Suspect]
     Indication: DRY EYE
     Dosage: 2 GTT, BID
     Route: 047
     Dates: start: 201203
  2. RESTASIS? [Suspect]
     Dosage: 2 GTT, BID
     Route: 047
     Dates: start: 201202
  3. REFRESH PLUS [Concomitant]
     Indication: DRY EYE
     Dosage: UP TO 6 TIMES PER DAY, PRN
     Route: 047
  4. LISINOPRIL [Concomitant]
     Indication: HYPERTENSION
     Dosage: 10MG 1/2 TO 1 QD
     Route: 065
  5. LIPITOR [Concomitant]
     Indication: BLOOD CHOLESTEROL INCREASED
     Dosage: UNK
     Route: 065

REACTIONS (1)
  - Blood pressure inadequately controlled [Not Recovered/Not Resolved]
